FAERS Safety Report 18122476 (Version 3)
Quarter: 2024Q4

REPORT INFORMATION
  Report Type: Spontaneous
  Country: CH (occurrence: CH)
  Receive Date: 20200807
  Receipt Date: 20241205
  Transmission Date: 20250114
  Serious: Yes (Other)
  Sender: TEVA
  Company Number: CH-SM-2020-13738

PATIENT
  Sex: Male

DRUGS (2)
  1. ISOTRETINOIN [Suspect]
     Active Substance: ISOTRETINOIN
     Indication: Product used for unknown indication
     Route: 065
     Dates: start: 20190904
  2. ISOTRETINOIN [Suspect]
     Active Substance: ISOTRETINOIN
     Indication: Product used for unknown indication
     Dosage: ISOTRETINOIN MEPHA, PAUSED IN DECEMBER FOR 1 WEEK
     Route: 065
     Dates: start: 201909

REACTIONS (4)
  - Erectile dysfunction [Recovered/Resolved]
  - Depression [Recovered/Resolved]
  - Head discomfort [Recovered/Resolved]
  - Affect lability [Recovered/Resolved]

NARRATIVE: CASE EVENT DATE: 20190901
